FAERS Safety Report 16742890 (Version 2)
Quarter: 2025Q2

REPORT INFORMATION
  Report Type: Spontaneous
  Country: FR (occurrence: FR)
  Receive Date: 20190827
  Receipt Date: 20250624
  Transmission Date: 20250716
  Serious: Yes (Hospitalization)
  Sender: AUROBINDO
  Company Number: FR-AUROBINDO-AUR-APL-2019-056105

PATIENT
  Age: 15 Year
  Sex: Female

DRUGS (4)
  1. IBUPROFEN [Suspect]
     Active Substance: IBUPROFEN
     Indication: Pain
     Route: 065
  2. ACETAMINOPHEN [Suspect]
     Active Substance: ACETAMINOPHEN
     Indication: Pain
     Route: 065
  3. MORPHINE [Suspect]
     Active Substance: MORPHINE
     Indication: Pain
     Route: 042
  4. NITROUS OXIDE\OXYGEN [Suspect]
     Active Substance: NITROUS OXIDE\OXYGEN
     Indication: Pain
     Route: 055

REACTIONS (1)
  - Hallucination [Not Recovered/Not Resolved]
